FAERS Safety Report 10011173 (Version 1)
Quarter: 2014Q1

REPORT INFORMATION
  Report Type: Spontaneous
  Country: NO (occurrence: None)
  Receive Date: 20140311
  Receipt Date: 20140311
  Transmission Date: 20141002
  Serious: Yes (Hospitalization)
  Sender: FDA-Public Use
  Company Number: NO-20140002

PATIENT
  Age: 69 Year
  Sex: Male

DRUGS (1)
  1. DOTAREM [Suspect]
     Indication: ANGIOGRAM
     Dosage: INTRAVENOUS (NOT OTHERWISE SPECIFIED)?
     Route: 042
     Dates: start: 201402, end: 201402

REACTIONS (1)
  - Contrast media reaction [None]
